FAERS Safety Report 18700335 (Version 1)
Quarter: 2021Q1

REPORT INFORMATION
  Report Type: Spontaneous
  Country: US (occurrence: US)
  Receive Date: 20210105
  Receipt Date: 20210105
  Transmission Date: 20210419
  Serious: Yes (Other)
  Sender: FDA-Public Use
  Company Number: US-PFIZER INC-2021000963

PATIENT
  Age: 77 Year
  Sex: Male

DRUGS (1)
  1. DIPHENHYDRAMINE HCL [Suspect]
     Active Substance: DIPHENHYDRAMINE HYDROCHLORIDE
     Indication: INSOMNIA
     Dosage: BETWEEN 250 MG AND 750 MG,NIGHTLY

REACTIONS (3)
  - Overdose [Unknown]
  - Dementia [Unknown]
  - Product use in unapproved indication [Unknown]
